FAERS Safety Report 25079936 (Version 1)
Quarter: 2025Q1

REPORT INFORMATION
  Report Type: Spontaneous
  Country: IL (occurrence: IL)
  Receive Date: 20250314
  Receipt Date: 20250314
  Transmission Date: 20250409
  Serious: No
  Sender: JOHNSON AND JOHNSON
  Company Number: IL-JNJFOC-20250332205

PATIENT

DRUGS (1)
  1. SIMPONI [Suspect]
     Active Substance: GOLIMUMAB
     Indication: Product used for unknown indication
     Route: 058

REACTIONS (1)
  - Device deployment issue [Unknown]
